FAERS Safety Report 12893753 (Version 1)
Quarter: 2016Q4

REPORT INFORMATION
  Report Type: Spontaneous
  Country: US (occurrence: US)
  Receive Date: 20161028
  Receipt Date: 20161028
  Transmission Date: 20170207
  Serious: No
  Sender: FDA-Public Use
  Company Number: US-GLAXOSMITHKLINE-US2016158625

PATIENT
  Age: 58 Year
  Sex: Female

DRUGS (3)
  1. VENTOLIN HFA [Suspect]
     Active Substance: ALBUTEROL SULFATE
     Indication: PRODUCT USED FOR UNKNOWN INDICATION
     Dosage: 2 PUFF(S), PRN
     Dates: start: 1995
  2. ATROVENT [Concomitant]
     Active Substance: IPRATROPIUM BROMIDE
  3. SYMBICORT [Concomitant]
     Active Substance: BUDESONIDE\FORMOTEROL FUMARATE DIHYDRATE

REACTIONS (5)
  - Dyspnoea [Recovering/Resolving]
  - Cough [Recovering/Resolving]
  - Choking sensation [Recovered/Resolved]
  - Product cleaning inadequate [Unknown]
  - Device use error [Unknown]

NARRATIVE: CASE EVENT DATE: 20161026
